FAERS Safety Report 5643378-3 (Version None)
Quarter: 2008Q1

REPORT INFORMATION
  Report Type: 
  Country: None (occurrence: None)
  Receive Date: 20080226
  Receipt Date: 20080214
  Transmission Date: 20080703
  Serious: Yes (Hospitalization)
  Sender: FDA-Public Use
  Company Number: 100#03#2008-00882

PATIENT
  Age: 72 Year
  Sex: Male

DRUGS (12)
  1. ACYCLOVIR [Suspect]
     Indication: CHEMOTHERAPY
     Dates: start: 20070622, end: 20071116
  2. ALENDRONIC ACID [Suspect]
     Indication: OSTEOPOROSIS
     Dates: start: 20071201
  3. CIPROFLOXACIN [Suspect]
     Indication: CHEMOTHERAPY
     Dates: start: 20070622, end: 20071116
  4. FLUCONAZOLE [Suspect]
     Indication: CHEMOTHERAPY
     Dates: start: 20070622, end: 20071116
  5. ONDANSETRON HCL [Suspect]
     Indication: DRUG USE FOR UNKNOWN INDICATION
  6. LANSOPRAZOLE [Suspect]
     Indication: DRUG USE FOR UNKNOWN INDICATION
  7. ALLOPURINOL [Suspect]
     Indication: DRUG USE FOR UNKNOWN INDICATION
  8. SULFAMETHOXAZOLE AND TRIMETHOPRIM [Suspect]
     Indication: DRUG USE FOR UNKNOWN INDICATION
  9. CYCLOPHOSPHAMIDE [Suspect]
     Indication: CHEMOTHERAPY
     Dates: start: 20070622, end: 20071116
  10. PREDNISOLONE [Suspect]
     Indication: CHEMOTHERAPY
     Dates: start: 20070622, end: 20071116
  11. RITUXIMAB (RITUXIMAB) [Suspect]
     Indication: CHEMOTHERAPY
     Dates: start: 20070622, end: 20071116
  12. VINCRISTINE [Suspect]
     Indication: CHEMOTHERAPY
     Dates: start: 20070622, end: 20071116

REACTIONS (1)
  - TOXIC SKIN ERUPTION [None]
